FAERS Safety Report 4620803-8 (Version None)
Quarter: 2005Q2

REPORT INFORMATION
  Report Type: 
  Country: None (occurrence: None)
  Receive Date: 20050315
  Receipt Date: 20050124
  Transmission Date: 20051028
  Serious: No
  Sender: FDA-Public Use
  Company Number: US-YAMANOUCHI-YPA20050040

PATIENT
  Age: 38 Year
  Sex: Male
  Weight: 85.2762 kg

DRUGS (5)
  1. VESICARE [Suspect]
     Indication: HYPERTONIC BLADDER
     Dosage: 5 MG QD PO
     Route: 048
     Dates: start: 20050117
  2. KLONOPIN [Concomitant]
  3. TEGRETOL [Concomitant]
  4. RISPERDAL [Concomitant]
  5. LITHIUM [Concomitant]

REACTIONS (2)
  - DYSGEUSIA [None]
  - SALIVARY HYPERSECRETION [None]
